FAERS Safety Report 13205627 (Version 1)
Quarter: 2017Q1

REPORT INFORMATION
  Report Type: Spontaneous
  Country: PE (occurrence: PE)
  Receive Date: 20170209
  Receipt Date: 20170209
  Transmission Date: 20170428
  Serious: Yes (Other)
  Sender: FDA-Public Use
  Company Number: PE-PFIZER INC-2016464676

PATIENT
  Age: 71 Year
  Sex: Female

DRUGS (3)
  1. XALATAN [Suspect]
     Active Substance: LATANOPROST
     Dosage: 1 GTT, DAILY
     Route: 047
  2. LYRICA [Suspect]
     Active Substance: PREGABALIN
     Indication: OSTEOARTHRITIS
  3. LYRICA [Suspect]
     Active Substance: PREGABALIN
     Indication: PAIN
     Dosage: 75 MG, 1X/DAY
     Route: 048

REACTIONS (3)
  - Fall [Unknown]
  - Limb injury [Unknown]
  - Arthropathy [Unknown]

NARRATIVE: CASE EVENT DATE: 201609
